FAERS Safety Report 7280009-3 (Version None)
Quarter: 2011Q1

REPORT INFORMATION
  Report Type: 
  Country: None (occurrence: None)
  Receive Date: 20110125
  Receipt Date: 20110120
  Transmission Date: 20110831
  Serious: Yes (Other)
  Sender: FDA-Public Use
  Company Number: 20119927

PATIENT
  Sex: Male

DRUGS (1)
  1. LIORESAL [Suspect]
     Indication: MUSCLE SPASTICITY
     Dosage: DAILY, INTRATHECAL
     Route: 037

REACTIONS (6)
  - ABDOMINAL DISCOMFORT [None]
  - WEIGHT DECREASED [None]
  - GASTROINTESTINAL PAIN [None]
  - ABDOMINAL DISTENSION [None]
  - NAUSEA [None]
  - DECREASED APPETITE [None]
